FAERS Safety Report 4673903-0 (Version None)
Quarter: 2005Q2

REPORT INFORMATION
  Report Type: 
  Country: None (occurrence: None)
  Receive Date: 20050523
  Receipt Date: 20050222
  Transmission Date: 20051028
  Serious: No
  Sender: FDA-Public Use
  Company Number: HQWYE759002MAR05

PATIENT
  Age: 20 Year
  Sex: Female
  Weight: 49.94 kg

DRUGS (3)
  1. ALAVERT D-12 (LORATADINE/PSEUDOEPHEDRINE SULFATE, TABLET, EXTENDED REL [Suspect]
     Indication: RHINORRHOEA
     Dosage: 1 TABLET ONE TIME, ORAL
     Route: 048
     Dates: start: 20050220, end: 20050220
  2. ALAVERT D-12 (LORATADINE/PSEUDOEPHEDRINE SULFATE, TABLET, EXTENDED REL [Suspect]
     Indication: SNEEZING
     Dosage: 1 TABLET ONE TIME, ORAL
     Route: 048
     Dates: start: 20050220, end: 20050220
  3. ALAVERT D-12 (LORATADINE/PSEUDOEPHEDRINE SULFATE, TABLET, EXTENDED REL [Suspect]
     Indication: THROAT IRRITATION
     Dosage: 1 TABLET ONE TIME, ORAL
     Route: 048
     Dates: start: 20050220, end: 20050220

REACTIONS (6)
  - CONDITION AGGRAVATED [None]
  - DRY THROAT [None]
  - PHARYNGOLARYNGEAL PAIN [None]
  - RHINORRHOEA [None]
  - SNEEZING [None]
  - THROAT IRRITATION [None]
